FAERS Safety Report 5535456-4 (Version None)
Quarter: 2007Q4

REPORT INFORMATION
  Report Type: 
  Country: None (occurrence: None)
  Receive Date: 20071204
  Receipt Date: 20071204
  Transmission Date: 20080405
  Serious: Yes (Other)
  Sender: FDA-Public Use
  Company Number: None

PATIENT
  Age: 39 Year
  Sex: Female
  Weight: 73.9363 kg

DRUGS (2)
  1. CHANTIX [Suspect]
     Indication: TOBACCO USER
     Dosage: 0.5 - 1 MG  DAILY  PO
     Route: 048
     Dates: start: 20070409, end: 20070601
  2. CHANTIX [Suspect]
     Dosage: 1 MG  DAILY  PO
     Route: 048
     Dates: start: 20070829, end: 20070930

REACTIONS (2)
  - BRONCHITIS [None]
  - SUICIDAL IDEATION [None]
